FAERS Safety Report 8266923-0 (Version None)
Quarter: 2012Q2

REPORT INFORMATION
  Report Type: 
  Country: None (occurrence: None)
  Receive Date: 20120404
  Receipt Date: 20120404
  Transmission Date: 20120825
  Serious: Yes (Hospitalization)
  Sender: FDA-Public Use
  Company Number: None

PATIENT
  Age: 64 Year
  Sex: Male
  Weight: 113.5 kg

DRUGS (1)
  1. CEFTAZIDIME [Suspect]
     Indication: OSTEOMYELITIS
     Dosage: 2 GM TID IV
     Route: 042
     Dates: start: 20120111, end: 20120116

REACTIONS (6)
  - URTICARIA [None]
  - ANGIOEDEMA [None]
  - OEDEMA PERIPHERAL [None]
  - RASH ERYTHEMATOUS [None]
  - RASH PRURITIC [None]
  - DYSPNOEA [None]
